FAERS Safety Report 5787961-3 (Version None)
Quarter: 2008Q2

REPORT INFORMATION
  Report Type: 
  Country: None (occurrence: None)
  Receive Date: 20080625
  Receipt Date: 20080618
  Transmission Date: 20081010
  Serious: Yes (Other)
  Sender: FDA-Public Use
  Company Number: D0057454A

PATIENT
  Age: 10 Year
  Sex: Female
  Weight: 50 kg

DRUGS (1)
  1. FLUTIDE JUNIOR [Suspect]
     Indication: ASTHMA
     Dosage: 50MCG TWICE PER DAY
     Route: 055
     Dates: start: 20060101

REACTIONS (4)
  - AGGRESSION [None]
  - OBSESSIVE-COMPULSIVE DISORDER [None]
  - RESTLESSNESS [None]
  - SLEEP DISORDER [None]
